FAERS Safety Report 5285719-5 (Version None)
Quarter: 2007Q1

REPORT INFORMATION
  Report Type: 
  Country: None (occurrence: None)
  Receive Date: 20070126
  Receipt Date: 20061215
  Transmission Date: 20070707
  Serious: Yes (Other)
  Sender: FDA-Public Use
  Company Number: 2006-BP-14624BP

PATIENT
  Age: 57 Year
  Sex: Male

DRUGS (1)
  1. APTIVUS/RITONAVIR CAPSULES (TIPRANAVIR W/RITONAVIR) [Suspect]
     Indication: HIV INFECTION
     Dosage: TPV/RTV 500/200 MG BID (SEE TEXT,STRENGTH TPV/RTV 250MG/100MG),PO
     Route: 048

REACTIONS (1)
  - CEREBRAL HAEMORRHAGE [None]
